FAERS Safety Report 8364274-7 (Version None)
Quarter: 2012Q2

REPORT INFORMATION
  Report Type: 
  Country: None (occurrence: None)
  Receive Date: 20120516
  Receipt Date: 20120510
  Transmission Date: 20120825
  Serious: Yes (Hospitalization, Other)
  Sender: FDA-Public Use
  Company Number: PR-ABBOTT-12P-131-0929582-00

PATIENT
  Sex: Female
  Weight: 88.984 kg

DRUGS (13)
  1. FOLIC ACID [Concomitant]
     Indication: PRODUCT USED FOR UNKNOWN INDICATION
     Route: 048
  2. VITAMIN D [Concomitant]
     Indication: PRODUCT USED FOR UNKNOWN INDICATION
     Dosage: 1 IN 1 DAY, SOFT GEL
     Route: 048
  3. HUMIRA [Suspect]
     Indication: RHEUMATOID ARTHRITIS
     Route: 058
     Dates: start: 20110901, end: 20111001
  4. HUMIRA [Suspect]
     Route: 058
     Dates: start: 20111001, end: 20111101
  5. SYNTHROID [Concomitant]
     Indication: THYROID NEOPLASM
     Route: 048
  6. HUMIRA [Suspect]
     Route: 058
     Dates: start: 20120201, end: 20120401
  7. HUMIRA [Suspect]
     Route: 058
     Dates: start: 20120509
  8. NORVASC [Concomitant]
     Indication: HYPERTENSION
     Route: 048
  9. JANUVIA [Concomitant]
     Indication: DIABETES MELLITUS
     Route: 048
  10. HUMIRA [Suspect]
     Route: 058
     Dates: start: 20120101, end: 20120201
  11. CYMBALTA [Concomitant]
     Indication: PRODUCT USED FOR UNKNOWN INDICATION
     Route: 048
  12. AVAPRO [Concomitant]
     Indication: HYPERTENSION
     Route: 048
  13. METHOTREXATE [Concomitant]
     Indication: PRODUCT USED FOR UNKNOWN INDICATION
     Route: 058

REACTIONS (3)
  - ARTHRITIS [None]
  - URINARY TRACT INFECTION [None]
  - OVARIAN CYST [None]
